FAERS Safety Report 6164150 (Version 2)
Quarter: 2017Q1

REPORT INFORMATION
  Report Type: Spontaneous
  Country: US (occurrence: US)
  Receive Date: 20061109
  Receipt Date: 20170306
  Transmission Date: 20170429
  Serious: Yes (Hospitalization)
  Sender: FDA-Public Use
  Company Number: US-JNJFOC-20061100035

PATIENT
  Age: 73 Year
  Sex: Female
  Weight: 81.65 kg

DRUGS (19)
  1. FENTANYL. [Suspect]
     Active Substance: FENTANYL
     Indication: FIBROMYALGIA
     Route: 062
     Dates: start: 200610, end: 200610
  2. AZOPT [Concomitant]
     Active Substance: BRINZOLAMIDE
     Indication: MACULAR DEGENERATION
     Route: 031
  3. LUMIGAN [Concomitant]
     Active Substance: BIMATOPROST
     Indication: MACULAR DEGENERATION
     Route: 031
  4. FENTANYL. [Suspect]
     Active Substance: FENTANYL
     Indication: BACK PAIN
     Route: 062
     Dates: start: 200610, end: 200610
  5. FENTANYL. [Suspect]
     Active Substance: FENTANYL
     Indication: FIBROMYALGIA
     Route: 062
     Dates: start: 200610
  6. NEXIUM [Concomitant]
     Active Substance: ESOMEPRAZOLE MAGNESIUM
     Indication: GASTROOESOPHAGEAL REFLUX DISEASE
     Route: 048
     Dates: start: 1999
  7. PRIMIDONE. [Concomitant]
     Active Substance: PRIMIDONE
     Route: 048
  8. FENTANYL. [Suspect]
     Active Substance: FENTANYL
     Indication: BACK PAIN
     Route: 062
     Dates: start: 200610
  9. FENTANYL. [Suspect]
     Active Substance: FENTANYL
     Indication: FIBROMYALGIA
     Route: 062
     Dates: start: 200610, end: 200610
  10. TRAZODONE [Concomitant]
     Active Substance: TRAZODONE HYDROCHLORIDE
     Route: 065
  11. ALPHAGAN P [Concomitant]
     Active Substance: BRIMONIDINE TARTRATE
     Indication: MACULAR DEGENERATION
     Route: 031
  12. CARDIA [Concomitant]
     Active Substance: AJMALINE
     Indication: MYOCARDIAL INFARCTION
     Route: 048
  13. PREDNISONE. [Concomitant]
     Active Substance: PREDNISONE
     Route: 065
  14. FENTANYL TRANSDERMAL SYSTEM [Suspect]
     Active Substance: FENTANYL
     Indication: FIBROMYALGIA
     Route: 062
     Dates: start: 20060912
  15. FENTANYL. [Suspect]
     Active Substance: FENTANYL
     Indication: FIBROMYALGIA
     Route: 062
     Dates: start: 200610, end: 200610
  16. FENTANYL. [Suspect]
     Active Substance: FENTANYL
     Indication: BACK PAIN
     Route: 062
     Dates: start: 200610, end: 200610
  17. FENTANYL. [Suspect]
     Active Substance: FENTANYL
     Indication: BACK PAIN
     Route: 062
     Dates: start: 200610, end: 200610
  18. CYMBALTA [Concomitant]
     Active Substance: DULOXETINE HYDROCHLORIDE
     Indication: HYPOAESTHESIA
     Route: 048
  19. DIOVAN [Concomitant]
     Active Substance: VALSARTAN
     Route: 048

REACTIONS (7)
  - Decreased appetite [Recovered/Resolved]
  - Nausea [Recovered/Resolved]
  - Spinal compression fracture [Not Recovered/Not Resolved]
  - Bradyphrenia [Recovered/Resolved]
  - Spinal compression fracture [Not Recovered/Not Resolved]
  - Back pain [Not Recovered/Not Resolved]
  - Gallbladder disorder [Recovered/Resolved]

NARRATIVE: CASE EVENT DATE: 200609
